FAERS Safety Report 13500094 (Version 1)
Quarter: 2017Q2

REPORT INFORMATION
  Report Type: Spontaneous
  Country: SE (occurrence: SE)
  Receive Date: 20170501
  Receipt Date: 20170501
  Transmission Date: 20170830
  Serious: Yes (Hospitalization)
  Sender: FDA-Public Use
  Company Number: SE-TEVA-762316ACC

PATIENT
  Age: 36 Year
  Sex: Male

DRUGS (10)
  1. ABILIFY [Concomitant]
     Active Substance: ARIPIPRAZOLE
  2. EMOVAT [Concomitant]
  3. SEROQUEL [Suspect]
     Active Substance: QUETIAPINE FUMARATE
     Dosage: 1200 MG (SINGELDOS)
     Route: 048
     Dates: start: 20150617, end: 20150617
  4. LOCOID [Concomitant]
     Active Substance: HYDROCORTISONE BUTYRATE
  5. XANOR [Suspect]
     Active Substance: ALPRAZOLAM
     Dosage: OKLAR M?NGD OCH STYRKA
     Route: 048
     Dates: start: 20150617, end: 20150617
  6. LOPERAMID MYLAN [Concomitant]
     Active Substance: LOPERAMIDE
  7. CIPRALEX [Concomitant]
     Active Substance: ESCITALOPRAM OXALATE
  8. SOBRIL [Concomitant]
     Active Substance: OXAZEPAM
  9. ELOCON [Concomitant]
     Active Substance: MOMETASONE FUROATE
  10. CITALOPRAM [Suspect]
     Active Substance: CITALOPRAM HYDROBROMIDE
     Dosage: 35 MG (SINGELDOS)
     Route: 048
     Dates: start: 20150617, end: 20150617

REACTIONS (5)
  - Hypotension [Recovered/Resolved]
  - Tachycardia [Recovered/Resolved]
  - Suicide attempt [Recovered/Resolved]
  - Toxicity to various agents [Recovered/Resolved]
  - Depressed level of consciousness [Recovered/Resolved]

NARRATIVE: CASE EVENT DATE: 20150617
